FAERS Safety Report 12946152 (Version 4)
Quarter: 2017Q1

REPORT INFORMATION
  Report Type: Spontaneous
  Country: CN (occurrence: CN)
  Receive Date: 20161116
  Receipt Date: 20170314
  Transmission Date: 20170428
  Serious: Yes (Hospitalization)
  Sender: FDA-Public Use
  Company Number: CN-009507513-1611CHN006282

PATIENT
  Age: 81 Year
  Sex: Female
  Weight: 30 kg

DRUGS (2)
  1. SODIUM CHLORIDE. [Suspect]
     Active Substance: SODIUM CHLORIDE
     Indication: FEBRILE INFECTION
     Dosage: 100 ML, BID
     Route: 041
     Dates: start: 20160805, end: 20160811
  2. TIENAM [Suspect]
     Active Substance: CILASTATIN SODIUM\IMIPENEM
     Indication: FEBRILE INFECTION
     Dosage: 0.5 G, BID
     Route: 041
     Dates: start: 20160805, end: 20160811

REACTIONS (1)
  - Superinfection [Recovered/Resolved]

NARRATIVE: CASE EVENT DATE: 20160808
